FAERS Safety Report 23300795 (Version 2)
Quarter: 2024Q1

REPORT INFORMATION
  Report Type: Report from Study
  Country: US (occurrence: None)
  Receive Date: 20231215
  Receipt Date: 20240116
  Transmission Date: 20240410
  Serious: Yes (Other)
  Sender: FDA-Public Use
  Company Number: 2023A204146

PATIENT
  Age: 66 Year
  Sex: Female
  Weight: 122 kg

DRUGS (4)
  1. FASENRA [Suspect]
     Active Substance: BENRALIZUMAB
     Indication: Asthma
     Dosage: 30.0MG UNKNOWN
     Route: 058
     Dates: start: 20220308
  2. NEXIUM [Suspect]
     Active Substance: ESOMEPRAZOLE MAGNESIUM
     Route: 048
  3. CRESTOR [Suspect]
     Active Substance: ROSUVASTATIN CALCIUM
     Route: 048
  4. SYMBICORT [Suspect]
     Active Substance: BUDESONIDE\FORMOTEROL FUMARATE DIHYDRATE
     Route: 055

REACTIONS (44)
  - Pulmonary hypertension [Unknown]
  - Chronic kidney disease [Unknown]
  - Foot fracture [Unknown]
  - Mitral valve incompetence [Unknown]
  - Essential hypertension [Unknown]
  - Decreased activity [Unknown]
  - Asthma [Not Recovered/Not Resolved]
  - Coronary artery disease [Unknown]
  - Rhinitis allergic [Unknown]
  - Obstructive sleep apnoea syndrome [Unknown]
  - Rhinitis [Unknown]
  - Chronic obstructive pulmonary disease [Unknown]
  - Irritable bowel syndrome [Unknown]
  - Gastrooesophageal reflux disease [Unknown]
  - Aphthous ulcer [Unknown]
  - Colorectal adenoma [Unknown]
  - Constipation [Unknown]
  - Large intestine polyp [Unknown]
  - Hyperparathyroidism secondary [Unknown]
  - Intervertebral disc protrusion [Unknown]
  - Spinal osteoarthritis [Unknown]
  - Occipital neuralgia [Unknown]
  - Radiculopathy [Unknown]
  - Intervertebral disc degeneration [Unknown]
  - Myofascial pain syndrome [Unknown]
  - Vertebral foraminal stenosis [Unknown]
  - Osteoarthritis [Unknown]
  - Cartilage injury [Unknown]
  - Spinal osteoarthritis [Unknown]
  - Osteoporosis [Unknown]
  - Anxiety [Unknown]
  - Depression [Unknown]
  - Post-traumatic stress disorder [Unknown]
  - Oedema [Unknown]
  - Arthralgia [Unknown]
  - Vitamin D deficiency [Unknown]
  - Obesity [Unknown]
  - Computerised tomogram abnormal [Unknown]
  - Pain [Unknown]
  - Dry eye [Unknown]
  - Vitreous detachment [Unknown]
  - Pseudophakia [Unknown]
  - Retinal degeneration [Unknown]
  - Drug ineffective [Unknown]

NARRATIVE: CASE EVENT DATE: 20190101
